FAERS Safety Report 13537338 (Version 5)
Quarter: 2018Q3

REPORT INFORMATION
  Report Type: Report from Study
  Country: US (occurrence: US)
  Receive Date: 20170511
  Receipt Date: 20180726
  Transmission Date: 20181010
  Serious: Yes (Hospitalization, Other)
  Sender: FDA-Public Use
  Company Number: US-TAKEDA-2016TUS022737

PATIENT
  Age: 51 Year
  Sex: Female
  Weight: 68.03 kg

DRUGS (4)
  1. VEDOLIZUMAB [Suspect]
     Active Substance: VEDOLIZUMAB
     Dosage: UNK
     Route: 042
     Dates: start: 20171030
  2. LOPERAMIDE [Concomitant]
     Active Substance: LOPERAMIDE
     Indication: DIARRHOEA
     Dosage: UNK
     Route: 048
  3. VEDOLIZUMAB [Suspect]
     Active Substance: VEDOLIZUMAB
     Dosage: UNK
     Route: 065
  4. VEDOLIZUMAB [Suspect]
     Active Substance: VEDOLIZUMAB
     Indication: CROHN^S DISEASE
     Dosage: UNK
     Route: 042
     Dates: start: 2016, end: 2016

REACTIONS (19)
  - Depression [Unknown]
  - Infusion site infection [Unknown]
  - Radius fracture [Unknown]
  - Hip fracture [Unknown]
  - Malaise [Unknown]
  - Off label use [Unknown]
  - Ocular discomfort [Unknown]
  - Amnesia [Unknown]
  - Nausea [Unknown]
  - Cerebrovascular disorder [Unknown]
  - Infusion site pain [Unknown]
  - Pouchitis [Unknown]
  - Poor venous access [Unknown]
  - Headache [Unknown]
  - Infusion site erythema [Unknown]
  - Forearm fracture [Unknown]
  - Dyschezia [Unknown]
  - Tinnitus [Unknown]
  - Infusion site bruising [Unknown]

NARRATIVE: CASE EVENT DATE: 201612
